FAERS Safety Report 11604841 (Version 1)
Quarter: 2015Q4

REPORT INFORMATION
  Report Type: Spontaneous
  Country: CH (occurrence: CH)
  Receive Date: 20151007
  Receipt Date: 20151007
  Transmission Date: 20160304
  Serious: Yes (Hospitalization)
  Sender: FDA-Public Use
  Company Number: CH-PFIZER INC-2015334412

PATIENT
  Age: 74 Year
  Sex: Male

DRUGS (9)
  1. SINTROM [Concomitant]
     Active Substance: ACENOCOUMAROL
     Dosage: UNK
  2. NORVIR [Interacting]
     Active Substance: RITONAVIR
     Indication: HIV INFECTION
     Dosage: 100 MG, DAILY
     Route: 048
  3. CALCIMAGON-D3 [Concomitant]
     Active Substance: CALCIUM\CHOLECALCIFEROL
     Dosage: UNK
  4. BELOC [Concomitant]
     Active Substance: METOPROLOL TARTRATE
     Dosage: UNK
  5. TENOFOVIR DISOPROXIL FUMARATE. [Concomitant]
     Active Substance: TENOFOVIR DISOPROXIL FUMARATE
     Dosage: UNK
     Dates: start: 2008
  6. EMTRICITABINE [Concomitant]
     Active Substance: EMTRICITABINE
     Dosage: UNK
     Dates: start: 2008
  7. REYATAZ [Interacting]
     Active Substance: ATAZANAVIR SULFATE
     Indication: HIV INFECTION
     Dosage: 300 MG, DAILY
     Route: 048
     Dates: end: 20150713
  8. 3TC [Concomitant]
     Active Substance: LAMIVUDINE
     Dosage: UNK
  9. CORDARONE [Suspect]
     Active Substance: AMIODARONE HYDROCHLORIDE
     Indication: ATRIAL FIBRILLATION
     Dosage: 100 MG, DAILY
     Route: 048

REACTIONS (3)
  - Drug interaction [Recovered/Resolved]
  - Renal impairment [Recovered/Resolved]
  - Calculus urinary [Recovered/Resolved]

NARRATIVE: CASE EVENT DATE: 2014
